FAERS Safety Report 7898332-8 (Version None)
Quarter: 2011Q4

REPORT INFORMATION
  Report Type: 
  Country: None (occurrence: None)
  Receive Date: 20111107
  Receipt Date: 20111102
  Transmission Date: 20120403
  Serious: Yes (Death, Hospitalization, Other)
  Sender: FDA-Public Use
  Company Number: US-AMGEN-USASP2011053037

PATIENT
  Sex: Male

DRUGS (2)
  1. CORTICOSTEROIDS [Concomitant]
     Indication: THROMBOCYTOPENIA
  2. NPLATE [Suspect]
     Indication: THROMBOCYTOPENIA
     Dosage: 3 MUG/KG, UNK
     Dates: start: 20110324, end: 20110521

REACTIONS (3)
  - B-CELL LYMPHOMA [None]
  - PLATELET COUNT DECREASED [None]
  - RESPIRATORY FAILURE [None]
